FAERS Safety Report 7396349-3 (Version None)
Quarter: 2011Q2

REPORT INFORMATION
  Report Type: 
  Country: None (occurrence: None)
  Receive Date: 20110406
  Receipt Date: 20110325
  Transmission Date: 20111010
  Serious: Yes (Other)
  Sender: FDA-Public Use
  Company Number: US-JNJFOC-20110312709

PATIENT
  Age: 54 Year
  Sex: Male
  Weight: 88.5 kg

DRUGS (6)
  1. VELCADE [Suspect]
     Route: 065
  2. DEXAMETHASONE [Suspect]
     Route: 048
  3. VELCADE [Suspect]
     Indication: MULTIPLE MYELOMA
     Route: 065
  4. CYCLOPHOSPHAMIDE [Suspect]
     Indication: MULTIPLE MYELOMA
     Dosage: OVER 2 HOURS ON DAY1
     Route: 042
  5. DEXAMETHASONE [Suspect]
     Indication: MULTIPLE MYELOMA
     Dosage: ON DAYS 1,2,4,5,8,9,11 AND 12
     Route: 048
  6. DOXIL [Suspect]
     Indication: MULTIPLE MYELOMA
     Dosage: OVER 1 HOUR ON DAY 4
     Route: 042

REACTIONS (1)
  - LYMPHOPENIA [None]
